FAERS Safety Report 7396209-8 (Version None)
Quarter: 2011Q2

REPORT INFORMATION
  Report Type: 
  Country: None (occurrence: None)
  Receive Date: 20110406
  Receipt Date: 20110329
  Transmission Date: 20111010
  Serious: Yes (Other)
  Sender: FDA-Public Use
  Company Number: US-ASTELLAS-2011US001256

PATIENT
  Age: 17 Year
  Sex: Female

DRUGS (1)
  1. PROGRAF [Suspect]
     Indication: LIVER TRANSPLANT
     Dosage: UNK
     Route: 065

REACTIONS (4)
  - HEPATIC FIBROSIS [None]
  - PLEURAL EFFUSION [None]
  - CHRONIC HEPATITIS [None]
  - HYPERCHOLESTEROLAEMIA [None]
